FAERS Safety Report 18070022 (Version 1)
Quarter: 2020Q3

REPORT INFORMATION
  Report Type: Spontaneous
  Country: US (occurrence: US)
  Receive Date: 20200727
  Receipt Date: 20200727
  Transmission Date: 20201103
  Serious: No
  Sender: FDA-Public Use
  Company Number: US-BEH-2020120335

PATIENT

DRUGS (2)
  1. HUMATE?P [Suspect]
     Active Substance: HUMAN COAGULATION FACTOR VIII/VON WILLEBRAND FACTOR COMPLEX
     Dosage: 500 INTERNATIONAL UNIT
     Route: 065
  2. HUMATE?P [Suspect]
     Active Substance: HUMAN COAGULATION FACTOR VIII/VON WILLEBRAND FACTOR COMPLEX
     Dosage: 500 INTERNATIONAL UNIT
     Route: 065

REACTIONS (4)
  - Device physical property issue [Unknown]
  - Product preparation issue [Unknown]
  - Device issue [Unknown]
  - No adverse event [Unknown]
